FAERS Safety Report 23585955 (Version 1)
Quarter: 2024Q1

REPORT INFORMATION
  Report Type: Spontaneous
  Country: DE (occurrence: DE)
  Receive Date: 20240301
  Receipt Date: 20240301
  Transmission Date: 20240410
  Serious: Yes (Hospitalization)
  Sender: FDA-Public Use
  Company Number: DE-JNJFOC-20240133204

PATIENT
  Age: 70 Year
  Sex: Female
  Weight: 82 kg

DRUGS (86)
  1. DEXAMETHASONE [Suspect]
     Active Substance: DEXAMETHASONE
     Indication: Plasma cell myeloma
     Dosage: 12.000MG
     Route: 048
     Dates: start: 20231123
  2. DEXAMETHASONE [Suspect]
     Active Substance: DEXAMETHASONE
     Dosage: 12.000MG
     Route: 048
     Dates: start: 20230323
  3. DEXAMETHASONE [Suspect]
     Active Substance: DEXAMETHASONE
     Dosage: 12.000MG
     Route: 048
     Dates: start: 20231012
  4. DEXAMETHASONE [Suspect]
     Active Substance: DEXAMETHASONE
     Dosage: 12.000MG
     Route: 048
     Dates: start: 20231019
  5. DEXAMETHASONE [Suspect]
     Active Substance: DEXAMETHASONE
     Dosage: 12.000MG
     Route: 048
     Dates: start: 20231026
  6. DEXAMETHASONE [Suspect]
     Active Substance: DEXAMETHASONE
     Dosage: 12.000MG
     Route: 048
     Dates: start: 20231102
  7. DEXAMETHASONE [Suspect]
     Active Substance: DEXAMETHASONE
     Dosage: 12.000MG
     Route: 048
     Dates: start: 20231116
  8. DEXAMETHASONE [Suspect]
     Active Substance: DEXAMETHASONE
     Dosage: 12.000MG
     Route: 048
     Dates: start: 20231117
  9. DEXAMETHASONE [Suspect]
     Active Substance: DEXAMETHASONE
     Dosage: 12.000MG
     Route: 048
     Dates: start: 20231130
  10. DEXAMETHASONE [Suspect]
     Active Substance: DEXAMETHASONE
     Dosage: 12.000MG
     Route: 048
     Dates: start: 20231214
  11. DEXAMETHASONE [Suspect]
     Active Substance: DEXAMETHASONE
     Dosage: 20.000MG
     Route: 042
     Dates: start: 20230330
  12. DEXAMETHASONE [Suspect]
     Active Substance: DEXAMETHASONE
     Dosage: 20.000MG
     Route: 042
     Dates: start: 20230406
  13. DEXAMETHASONE [Suspect]
     Active Substance: DEXAMETHASONE
     Dosage: 20.000MG
     Route: 042
     Dates: start: 20230420
  14. DEXAMETHASONE [Suspect]
     Active Substance: DEXAMETHASONE
     Dosage: 20.000MG
     Route: 042
     Dates: start: 20230525
  15. DEXAMETHASONE [Suspect]
     Active Substance: DEXAMETHASONE
     Dosage: 20.000MG
     Route: 042
     Dates: start: 20230615
  16. DEXAMETHASONE [Suspect]
     Active Substance: DEXAMETHASONE
     Dosage: 20.000MG
     Route: 048
     Dates: start: 20230323
  17. DEXAMETHASONE [Suspect]
     Active Substance: DEXAMETHASONE
     Dosage: 20.000MG
     Route: 048
     Dates: start: 20230427
  18. DEXAMETHASONE [Suspect]
     Active Substance: DEXAMETHASONE
     Dosage: 20.000MG
     Route: 048
     Dates: start: 20230511
  19. DEXAMETHASONE [Suspect]
     Active Substance: DEXAMETHASONE
     Dosage: 20.000MG
     Route: 048
     Dates: start: 20230519
  20. DEXAMETHASONE [Suspect]
     Active Substance: DEXAMETHASONE
     Dosage: 20.000MG
     Route: 048
     Dates: start: 20230601
  21. DEXAMETHASONE [Suspect]
     Active Substance: DEXAMETHASONE
     Dosage: 20.000MG
     Route: 048
     Dates: start: 20230629
  22. DEXAMETHASONE [Suspect]
     Active Substance: DEXAMETHASONE
     Dosage: 20.000MG
     Route: 048
     Dates: start: 20230713
  23. DEXAMETHASONE [Suspect]
     Active Substance: DEXAMETHASONE
     Dosage: 20.000MG
     Route: 048
     Dates: start: 20230720
  24. DEXAMETHASONE [Suspect]
     Active Substance: DEXAMETHASONE
     Dosage: 20.000MG
     Route: 048
     Dates: start: 20230803
  25. DEXAMETHASONE [Suspect]
     Active Substance: DEXAMETHASONE
     Dosage: 20.000MG
     Route: 048
     Dates: start: 20230810
  26. DEXAMETHASONE [Suspect]
     Active Substance: DEXAMETHASONE
     Dosage: 20.000MG
     Route: 048
     Dates: start: 20230817
  27. DEXAMETHASONE [Suspect]
     Active Substance: DEXAMETHASONE
     Dosage: 20.000MG
     Route: 048
     Dates: start: 20230824
  28. DEXAMETHASONE [Suspect]
     Active Substance: DEXAMETHASONE
     Dosage: 20.000MG
     Route: 048
     Dates: start: 20230831
  29. DEXAMETHASONE [Suspect]
     Active Substance: DEXAMETHASONE
     Dosage: 20.000MG
     Route: 048
     Dates: start: 20230907
  30. DEXAMETHASONE [Suspect]
     Active Substance: DEXAMETHASONE
     Dosage: 20.000MG
     Route: 048
     Dates: start: 20230914
  31. DEXAMETHASONE [Suspect]
     Active Substance: DEXAMETHASONE
     Dosage: 20.000MG
     Route: 048
     Dates: start: 20230921
  32. DEXAMETHASONE [Suspect]
     Active Substance: DEXAMETHASONE
     Dosage: 20.000MG
     Route: 048
     Dates: start: 20231005
  33. DEXAMETHASONE [Suspect]
     Active Substance: DEXAMETHASONE
     Dosage: 20.000MG
     Route: 048
     Dates: start: 20231005
  34. DARATUMUMAB [Suspect]
     Active Substance: DARATUMUMAB
     Indication: Plasma cell myeloma
     Dosage: 16.000MG/KG
     Route: 042
     Dates: start: 20230817
  35. DARATUMUMAB [Suspect]
     Active Substance: DARATUMUMAB
     Dosage: 16.000MG/KG
     Route: 042
     Dates: start: 20230330
  36. DARATUMUMAB [Suspect]
     Active Substance: DARATUMUMAB
     Dosage: 16.000MG/KG
     Route: 042
     Dates: start: 20230406
  37. DARATUMUMAB [Suspect]
     Active Substance: DARATUMUMAB
     Dosage: 16.000MG/KG
     Route: 042
     Dates: start: 20230420
  38. DARATUMUMAB [Suspect]
     Active Substance: DARATUMUMAB
     Dosage: 16.000MG/KG
     Route: 042
     Dates: start: 20230427
  39. DARATUMUMAB [Suspect]
     Active Substance: DARATUMUMAB
     Dosage: 16.000MG/KG
     Route: 042
     Dates: start: 20230504
  40. DARATUMUMAB [Suspect]
     Active Substance: DARATUMUMAB
     Dosage: 16.000MG/KG
     Route: 042
     Dates: start: 20230511
  41. DARATUMUMAB [Suspect]
     Active Substance: DARATUMUMAB
     Dosage: 16.000MG/KG
     Route: 042
     Dates: start: 20230519
  42. DARATUMUMAB [Suspect]
     Active Substance: DARATUMUMAB
     Dosage: 16.000MG/KG
     Route: 042
     Dates: start: 20230525
  43. DARATUMUMAB [Suspect]
     Active Substance: DARATUMUMAB
     Dosage: 16.000MG/KG
     Route: 042
     Dates: start: 20230615
  44. DARATUMUMAB [Suspect]
     Active Substance: DARATUMUMAB
     Dosage: 16.000MG/KG
     Route: 042
     Dates: start: 20230622
  45. DARATUMUMAB [Suspect]
     Active Substance: DARATUMUMAB
     Dosage: 16.000MG/KG
     Route: 042
     Dates: start: 20230706
  46. DARATUMUMAB [Suspect]
     Active Substance: DARATUMUMAB
     Dosage: 16.000MG/KG
     Route: 042
     Dates: start: 20230720
  47. DARATUMUMAB [Suspect]
     Active Substance: DARATUMUMAB
     Dosage: 16.000MG/KG
     Route: 042
     Dates: start: 20230803
  48. DARATUMUMAB [Suspect]
     Active Substance: DARATUMUMAB
     Dosage: 16.000MG/KG
     Route: 042
     Dates: start: 20230831
  49. DARATUMUMAB [Suspect]
     Active Substance: DARATUMUMAB
     Dosage: 16.000MG/KG
     Route: 042
     Dates: start: 20230914
  50. DARATUMUMAB [Suspect]
     Active Substance: DARATUMUMAB
     Dosage: 16.000MG/KG
     Route: 042
     Dates: start: 20231012
  51. DARATUMUMAB [Suspect]
     Active Substance: DARATUMUMAB
     Dosage: 16.000MG/KG
     Route: 042
     Dates: start: 20231116
  52. DARATUMUMAB [Suspect]
     Active Substance: DARATUMUMAB
     Dosage: 16.000MG/KG
     Route: 042
     Dates: start: 20231214
  53. DARATUMUMAB [Suspect]
     Active Substance: DARATUMUMAB
     Dosage: 8.000MG/KG
     Route: 042
     Dates: start: 20230323
  54. DARATUMUMAB [Suspect]
     Active Substance: DARATUMUMAB
     Dosage: 8.000MG/KG
     Route: 042
     Dates: start: 20230323
  55. LENALIDOMIDE [Suspect]
     Active Substance: LENALIDOMIDE
     Dosage: 10.000MG
     Route: 048
     Dates: start: 20230622, end: 20230712
  56. LENALIDOMIDE [Suspect]
     Active Substance: LENALIDOMIDE
     Dosage: 10.000MG
     Route: 048
     Dates: start: 20230720, end: 20230809
  57. LENALIDOMIDE [Suspect]
     Active Substance: LENALIDOMIDE
     Dosage: 10.000MG
     Route: 048
     Dates: start: 20230817, end: 20230906
  58. LENALIDOMIDE [Suspect]
     Active Substance: LENALIDOMIDE
     Dosage: 10.000MG
     Route: 048
     Dates: start: 20230914, end: 20231004
  59. LENALIDOMIDE [Suspect]
     Active Substance: LENALIDOMIDE
     Dosage: 10.000MG
     Route: 048
     Dates: start: 20231012, end: 20231101
  60. LENALIDOMIDE [Suspect]
     Active Substance: LENALIDOMIDE
     Dosage: 10.000MG
     Route: 048
     Dates: start: 20231116, end: 20231206
  61. LENALIDOMIDE [Suspect]
     Active Substance: LENALIDOMIDE
     Dosage: 10.000MG
     Route: 048
     Dates: start: 20231214
  62. LENALIDOMIDE [Suspect]
     Active Substance: LENALIDOMIDE
     Indication: Plasma cell myeloma
     Dosage: 15.000MG
     Route: 048
     Dates: start: 20230330, end: 20230412
  63. LENALIDOMIDE [Suspect]
     Active Substance: LENALIDOMIDE
     Dosage: 15.000MG
     Route: 048
     Dates: start: 20230525, end: 20230608
  64. LENALIDOMIDE [Suspect]
     Active Substance: LENALIDOMIDE
     Dosage: 15.000MG
     Route: 048
     Dates: start: 20230610, end: 20230615
  65. LENALIDOMIDE [Suspect]
     Active Substance: LENALIDOMIDE
     Dosage: 20.000MG
     Route: 048
     Dates: start: 20230323, end: 20230324
  66. AMLODIPINE [Concomitant]
     Active Substance: AMLODIPINE BESYLATE
     Indication: Hypertension
     Dosage: 10.000MG QD
     Route: 048
     Dates: start: 20230409
  67. AMLODIPINE [Concomitant]
     Active Substance: AMLODIPINE BESYLATE
     Dosage: 5.000MG
     Route: 048
     Dates: end: 20230408
  68. BISOPROLOL [Concomitant]
     Active Substance: BISOPROLOL\BISOPROLOL FUMARATE
     Indication: Hypertension
     Dosage: 2.500MG
     Route: 048
  69. CANDESARTAN [Concomitant]
     Active Substance: CANDESARTAN
     Indication: Hypertension
     Dosage: 16.000MG
     Route: 048
  70. CIMETIDINE [Concomitant]
     Active Substance: CIMETIDINE
     Indication: Prophylaxis
     Dosage: 200.000MG
     Route: 042
     Dates: start: 20230323, end: 20230406
  71. DEXAMETHASONE [Concomitant]
     Active Substance: DEXAMETHASONE
     Indication: Prophylaxis
     Dosage: 12.000MG
     Route: 048
     Dates: start: 20231207, end: 20231207
  72. DEXAMETHASONE [Concomitant]
     Active Substance: DEXAMETHASONE
     Dosage: 20.000MG BIW
     Route: 048
     Dates: start: 20230526, end: 20230609
  73. DEXAMETHASONE [Concomitant]
     Active Substance: DEXAMETHASONE
     Dosage: 20.000MG BIW
     Route: 048
     Dates: start: 20230623, end: 20230707
  74. DEXAMETHASONE [Concomitant]
     Active Substance: DEXAMETHASONE
     Dosage: 20.000MG BIW
     Route: 048
     Dates: start: 20230818, end: 20230901
  75. DEXAMETHASONE [Concomitant]
     Active Substance: DEXAMETHASONE
     Dosage: 20.000MG
     Route: 048
     Dates: start: 20230324, end: 20230407
  76. DEXAMETHASONE [Concomitant]
     Active Substance: DEXAMETHASONE
     Dosage: 20.000MG
     Route: 048
     Dates: start: 20230421, end: 20230421
  77. DEXAMETHASONE [Concomitant]
     Active Substance: DEXAMETHASONE
     Dosage: 20.000MG
     Route: 048
     Dates: start: 20230428, end: 20230520
  78. DEXAMETHASONE [Concomitant]
     Active Substance: DEXAMETHASONE
     Dosage: 20.000MG
     Route: 048
     Dates: start: 20230721, end: 20230804
  79. DIMETHINDENE [Concomitant]
     Active Substance: DIMETHINDENE
     Indication: Prophylaxis
     Dosage: 4.000MG
     Route: 042
     Dates: start: 20230323, end: 20230406
  80. IBUPROFEN [Concomitant]
     Active Substance: IBUPROFEN
     Indication: Back pain
     Route: 048
  81. MONTELUKAST [Concomitant]
     Active Substance: MONTELUKAST SODIUM
     Indication: Prophylaxis
     Dosage: 10.000MG
     Route: 048
     Dates: start: 20230323, end: 20230420
  82. ACETAMINOPHEN [Concomitant]
     Active Substance: ACETAMINOPHEN
     Dosage: 1000.000MG BIW
     Route: 048
     Dates: start: 20230622, end: 20230831
  83. ACETAMINOPHEN [Concomitant]
     Active Substance: ACETAMINOPHEN
     Indication: Prophylaxis
     Dosage: 1000.000MG TIW
     Route: 048
     Dates: start: 20230525, end: 20230615
  84. ACETAMINOPHEN [Concomitant]
     Active Substance: ACETAMINOPHEN
     Dosage: 1000.000MG
     Route: 048
     Dates: start: 20230323, end: 20230420
  85. ACETAMINOPHEN [Concomitant]
     Active Substance: ACETAMINOPHEN
     Dosage: 1000.000MG
     Route: 048
     Dates: start: 20230427, end: 20230519
  86. VALACYCLOVIR HYDROCHLORIDE [Concomitant]
     Active Substance: VALACYCLOVIR HYDROCHLORIDE
     Indication: Prophylaxis
     Dosage: 500.000MG
     Route: 048
     Dates: start: 20230323

REACTIONS (1)
  - Pericardial effusion [Not Recovered/Not Resolved]

NARRATIVE: CASE EVENT DATE: 20240108
